FAERS Safety Report 5022248-8 (Version None)
Quarter: 2006Q2

REPORT INFORMATION
  Report Type: 
  Country: None (occurrence: None)
  Receive Date: 20060609
  Receipt Date: 20060503
  Transmission Date: 20061013
  Serious: Yes (Life-Threatening, Hospitalization, Disabling, Other)
  Sender: FDA-Public Use
  Company Number: US-MERCK-0605USA00689

PATIENT
  Age: 64 Year
  Sex: Female

DRUGS (3)
  1. ZOCOR [Suspect]
     Route: 048
     Dates: start: 20060301, end: 20060501
  2. LOPID [Concomitant]
     Route: 065
     Dates: end: 20060501
  3. DILTIAZEM HYDROCHLORIDE [Concomitant]
     Route: 065
     Dates: end: 20060501

REACTIONS (7)
  - ANAEMIA [None]
  - AORTIC ARTERIOSCLEROSIS [None]
  - HYPERPHOSPHATAEMIA [None]
  - HYPERTENSION [None]
  - INTERVERTEBRAL DISC DEGENERATION [None]
  - RENAL FAILURE ACUTE [None]
  - RHABDOMYOLYSIS [None]
